FAERS Safety Report 22278867 (Version 1)
Quarter: 2023Q2

REPORT INFORMATION
  Report Type: Spontaneous
  Country: CA (occurrence: None)
  Receive Date: 20230503
  Receipt Date: 20230503
  Transmission Date: 20230722
  Serious: Yes (Life-Threatening, Hospitalization, Disabling)
  Sender: FDA-Public Use
  Company Number: 2023A100266

PATIENT
  Age: 57 Year
  Sex: Male

DRUGS (5)
  1. BRILINTA [Suspect]
     Active Substance: TICAGRELOR
     Indication: Percutaneous coronary intervention
  2. ASPIRIN [Concomitant]
     Active Substance: ASPIRIN
  3. CLOPIDOGREL [Concomitant]
     Active Substance: CLOPIDOGREL BISULFATE
  4. ENOXAPARIN [Concomitant]
     Active Substance: ENOXAPARIN
  5. TNKASE [Concomitant]
     Active Substance: TENECTEPLASE

REACTIONS (2)
  - Cerebral haematoma [Recovering/Resolving]
  - Intraventricular haemorrhage [Recovering/Resolving]
